FAERS Safety Report 9215157 (Version 2)
Quarter: 2013Q4

REPORT INFORMATION
  Report Type: Report from Study
  Country: JP (occurrence: JP)
  Receive Date: 20130405
  Receipt Date: 20131122
  Transmission Date: 20140711
  Serious: Yes (Other)
  Sender: FDA-Public Use
  Company Number: JP-OTSUKA-JP-2013-10786

PATIENT
  Age: 89 Year
  Sex: Male
  Weight: 53 kg

DRUGS (17)
  1. SAMSCA [Suspect]
     Indication: FLUID RETENTION
     Dosage: 15 MG MILLIGRAM(S), QAM
     Route: 048
     Dates: start: 20130307, end: 20130315
  2. NITROPEN [Concomitant]
     Indication: CARDIAC FAILURE
     Dosage: 0.3 MG MILLIGRAM(S), DAILY DOSE
     Route: 060
     Dates: end: 20130307
  3. FLOMOX [Concomitant]
     Dosage: 300 MG MILLIGRAM(S), DAILY DOSE
     Route: 048
     Dates: end: 20130307
  4. LASIX [Concomitant]
     Indication: CARDIAC FAILURE
     Dosage: 20 MG MILLIGRAM(S), DAILY DOSE
     Route: 048
  5. NOIDOUBLE [Concomitant]
     Indication: CARDIAC FAILURE
     Dosage: 25 MG MILLIGRAM(S), DAILY DOSE
     Route: 048
  6. LENIMEC [Concomitant]
     Indication: CARDIAC FAILURE
     Dosage: 2.5 MG MILLIGRAM(S), DAILY DOSE
     Route: 048
  7. GASTER D [Concomitant]
     Indication: PROPHYLAXIS
     Dosage: 10 MG MILLIGRAM(S), DAILY DOSE
     Route: 048
  8. SIGMART [Concomitant]
     Indication: CARDIAC FAILURE
     Dosage: 10 MG MILLIGRAM(S), DAILY DOSE
     Route: 048
  9. MAGLAX [Concomitant]
     Indication: CONSTIPATION
     Dosage: 1500 MG MILLIGRAM(S), DAILY DOSE
     Route: 048
  10. ADONA [Concomitant]
     Indication: PROPHYLAXIS
     Dosage: 90 MG MILLIGRAM(S), DAILY DOSE
     Route: 048
  11. CARNACULIN [Concomitant]
     Indication: PROPHYLAXIS
     Dosage: 150 IU, DAILY DOSE
     Route: 048
  12. HOKUNALIN [Concomitant]
     Dosage: 2 MG MILLIGRAM(S), DAILY DOSE
     Route: 061
  13. ATELEC [Concomitant]
     Dosage: 10 MG MILLIGRAM(S), DAILY DOSE
     Route: 048
     Dates: start: 20130308, end: 20130321
  14. MICARDIS [Concomitant]
     Indication: CARDIAC FAILURE
     Dosage: 40 MG MILLIGRAM(S), DAILY DOSE
     Route: 048
     Dates: start: 20130308
  15. PLETAAL [Concomitant]
     Dosage: 200 MG MILLIGRAM(S), DAILY DOSE
     Route: 048
     Dates: start: 20130320
  16. SCOPOLIA EXTRACT [Concomitant]
     Dosage: 60 MG MILLIGRAM(S), DAILY DOSE
     Route: 048
     Dates: start: 20130320
  17. CIBENOL [Concomitant]
     Dosage: 100 MG MILLIGRAM(S), DAILY DOSE
     Route: 048
     Dates: start: 20130321

REACTIONS (2)
  - Blood urea increased [Unknown]
  - Thirst [Recovering/Resolving]
